FAERS Safety Report 8786483 (Version 1)
Quarter: 2012Q4

REPORT INFORMATION
  Report Type: Report from Study
  Country: US (occurrence: US)
  Receive Date: 20120914
  Receipt Date: 20120914
  Transmission Date: 20130627
  Serious: No
  Sender: FDA-Public Use
  Company Number: US-VERTEX PHARMACEUTICAL INC.-AE-2012-011288

PATIENT
  Age: 54 Year
  Sex: Male
  Weight: 86.36 kg

DRUGS (12)
  1. INCIVEK [Suspect]
     Indication: HEPATITIS C
     Route: 048
     Dates: start: 20120708
  2. PEGASYS [Concomitant]
     Indication: HEPATITIS C
     Route: 058
     Dates: start: 20120708
  3. RIBAVIRIN [Concomitant]
     Indication: HEPATITIS C
     Route: 048
     Dates: start: 20120708
  4. XANAX [Concomitant]
  5. LASIX [Concomitant]
  6. OMEPRAZOLE [Concomitant]
  7. POTASSIUM [Concomitant]
  8. SENNA [Concomitant]
  9. VITAMIN B-12 LOZ [Concomitant]
  10. DEXILANT [Concomitant]
  11. FOLIC ACID [Concomitant]
  12. AMILORIDE [Concomitant]

REACTIONS (3)
  - Insomnia [Unknown]
  - Diarrhoea [Unknown]
  - Nausea [Not Recovered/Not Resolved]
